FAERS Safety Report 8200914-0 (Version None)
Quarter: 2012Q1

REPORT INFORMATION
  Report Type: 
  Country: None (occurrence: None)
  Receive Date: 20120312
  Receipt Date: 20110629
  Transmission Date: 20120608
  Serious: No
  Sender: FDA-Public Use
  Company Number: US-ABBOTT-11P-163-0836147-00

PATIENT
  Sex: Female

DRUGS (7)
  1. PRILOSEC [Concomitant]
     Indication: PRODUCT USED FOR UNKNOWN INDICATION
  2. PEPCID [Concomitant]
     Indication: PRODUCT USED FOR UNKNOWN INDICATION
  3. TRAMADOL HCL [Concomitant]
     Indication: PRODUCT USED FOR UNKNOWN INDICATION
  4. HYDROMORPHONE HCL [Concomitant]
     Indication: PRODUCT USED FOR UNKNOWN INDICATION
  5. LUPRON DEPOT [Suspect]
     Indication: ENDOMETRIOSIS
     Route: 050
     Dates: start: 20110602
  6. LUPRON DEPOT [Suspect]
     Dosage: UNKNOWN DOSE
     Route: 050
  7. NORETHINDRONE ACETATE [Concomitant]
     Indication: PRODUCT USED FOR UNKNOWN INDICATION

REACTIONS (2)
  - ERYTHEMA [None]
  - URTICARIA [None]
